FAERS Safety Report 5618698-9 (Version None)
Quarter: 2008Q1

REPORT INFORMATION
  Report Type: 
  Country: None (occurrence: None)
  Receive Date: 20080207
  Receipt Date: 20080204
  Transmission Date: 20080703
  Serious: Yes (Death)
  Sender: FDA-Public Use
  Company Number: JP-ASTRAZENECA-2007AP07790

PATIENT
  Age: 81 Year
  Sex: Male
  Weight: 70 kg

DRUGS (6)
  1. CASODEX [Suspect]
     Indication: PROSTATE CANCER
     Route: 048
     Dates: start: 20040331, end: 20071201
  2. ZOLADEX [Concomitant]
     Indication: PROSTATE CANCER
     Route: 058
     Dates: start: 20051222, end: 20071122
  3. DAONIL [Concomitant]
     Indication: DIABETES MELLITUS
     Route: 048
     Dates: start: 20040323, end: 20040429
  4. DIETHYLSTILBESTROL [Concomitant]
     Indication: PROSTATE CANCER
     Route: 041
     Dates: start: 20040323, end: 20040330
  5. LEUPROLIDE ACETATE [Concomitant]
     Indication: PROSTATE CANCER
     Route: 058
     Dates: start: 20040401, end: 20051124
  6. DANTRIUM [Concomitant]
     Indication: MUSCLE SPASMS
     Route: 048
     Dates: start: 20071122, end: 20071201

REACTIONS (1)
  - INTERSTITIAL LUNG DISEASE [None]
